FAERS Safety Report 5373363-0 (Version None)
Quarter: 2007Q2

REPORT INFORMATION
  Report Type: 
  Country: None (occurrence: None)
  Receive Date: 20070628
  Receipt Date: 20070618
  Transmission Date: 20071010
  Serious: Yes (Other)
  Sender: FDA-Public Use
  Company Number: DE-JNJFOC-20070305911

PATIENT
  Sex: Male
  Weight: 91 kg

DRUGS (5)
  1. IMODIUM AD [Suspect]
     Indication: DRUG USE FOR UNKNOWN INDICATION
     Route: 065
  2. MCP [Interacting]
     Indication: DRUG USE FOR UNKNOWN INDICATION
     Route: 065
  3. IMODIUM AD [Suspect]
     Route: 060
  4. IMODIUM AD [Suspect]
     Route: 060
  5. MCP [Interacting]
     Route: 042

REACTIONS (3)
  - DRUG INTERACTION [None]
  - MUSCLE CONTRACTIONS INVOLUNTARY [None]
  - TONGUE SPASM [None]
